FAERS Safety Report 6146321-6 (Version None)
Quarter: 2009Q2

REPORT INFORMATION
  Report Type: 
  Country: None (occurrence: None)
  Receive Date: 20090407
  Receipt Date: 20090324
  Transmission Date: 20091009
  Serious: Yes (Death)
  Sender: FDA-Public Use
  Company Number: DE-EISAI MEDICAL RESEARCH-E2090-00709-SPO-DE

PATIENT
  Sex: Male

DRUGS (2)
  1. ZONEGRAN [Suspect]
     Indication: EPILEPSY
     Dosage: UNKNOWN
     Route: 048
  2. CARBAMAZEPINE [Concomitant]
     Dosage: UNKNOWN
     Route: 048

REACTIONS (1)
  - LEUKOPENIA [None]
